FAERS Safety Report 17272482 (Version 1)
Quarter: 2020Q1

REPORT INFORMATION
  Report Type: Spontaneous
  Country: US (occurrence: US)
  Receive Date: 20200114
  Receipt Date: 20200114
  Transmission Date: 20200409
  Serious: No
  Sender: FDA-Public Use
  Company Number: None

PATIENT
  Age: 39 Year
  Sex: Female
  Weight: 63 kg

DRUGS (3)
  1. CITRACAL MAXIMUM PLUS [Concomitant]
     Active Substance: CALCIUM CITRATE\CHOLECALCIFEROL
  2. COLGATE TOTAL SF CLEAN MINT [Suspect]
     Active Substance: STANNOUS FLUORIDE
     Indication: DENTAL DISORDER PROPHYLAXIS
     Dosage: ?          OTHER ROUTE:BRUSH ON TEETH AND RINSE?
  3. ONE A DAY WOMEN^S TABLETS [Concomitant]

REACTIONS (8)
  - Lip pain [None]
  - Middle insomnia [None]
  - Hypoaesthesia oral [None]
  - Gingival pain [None]
  - Paraesthesia oral [None]
  - Toothache [None]
  - Glossodynia [None]
  - Swollen tongue [None]

NARRATIVE: CASE EVENT DATE: 20191201
